FAERS Safety Report 4813260-X (Version None)
Quarter: 2005Q4

REPORT INFORMATION
  Report Type: 
  Country: None (occurrence: None)
  Receive Date: 20051028
  Receipt Date: 20050419
  Transmission Date: 20060501
  Serious: No
  Sender: FDA-Public Use
  Company Number: US-GLAXOSMITHKLINE-A0554831A

PATIENT
  Sex: Male

DRUGS (4)
  1. ADVAIR DISKUS 100/50 [Suspect]
     Dosage: 1PUFF TWICE PER DAY
     Route: 055
     Dates: start: 20050201
  2. ALLEGRA [Concomitant]
  3. LIPITOR [Concomitant]
  4. ZETIA [Concomitant]

REACTIONS (2)
  - FACIAL PAIN [None]
  - GLOSSODYNIA [None]
